FAERS Safety Report 11616956 (Version 3)
Quarter: 2016Q3

REPORT INFORMATION
  Report Type: Spontaneous
  Country: US (occurrence: US)
  Receive Date: 20151009
  Receipt Date: 20160725
  Transmission Date: 20161109
  Serious: Yes (Other)
  Sender: FDA-Public Use
  Company Number: US-BAYER-2015-435112

PATIENT
  Sex: Female
  Weight: 89.8 kg

DRUGS (1)
  1. AVELOX [Suspect]
     Active Substance: MOXIFLOXACIN HYDROCHLORIDE
     Indication: INFECTION
     Dosage: 500 MG, UNK
     Dates: start: 200510, end: 200702

REACTIONS (4)
  - Neuropathy peripheral [None]
  - Injury [None]
  - Emotional distress [None]
  - Pain [None]
